FAERS Safety Report 21861557 (Version 1)
Quarter: 2023Q1

REPORT INFORMATION
  Report Type: Spontaneous
  Country: US (occurrence: US)
  Receive Date: 20230113
  Receipt Date: 20230113
  Transmission Date: 20230418
  Serious: Yes (Other)
  Sender: FDA-Public Use
  Company Number: US-BAYER-2023A001656

PATIENT
  Age: 49 Year
  Sex: Male

DRUGS (3)
  1. NUBEQA [Suspect]
     Active Substance: DAROLUTAMIDE
     Dosage: UNK
     Dates: start: 202204
  2. ORGOVYX [Concomitant]
     Active Substance: RELUGOLIX
  3. TAXOTERE [Concomitant]
     Active Substance: DOCETAXEL
     Dosage: UNK
     Dates: end: 20220818

REACTIONS (8)
  - Neuropathy peripheral [None]
  - Oropharyngeal pain [None]
  - Muscular weakness [None]
  - Dysphagia [None]
  - Decreased appetite [None]
  - Paraesthesia [None]
  - Paraesthesia [None]
  - Paraesthesia [None]

NARRATIVE: CASE EVENT DATE: 20221225
